FAERS Safety Report 23681246 (Version 1)
Quarter: 2024Q1

REPORT INFORMATION
  Report Type: Spontaneous
  Country: ES (occurrence: None)
  Receive Date: 20240328
  Receipt Date: 20240328
  Transmission Date: 20240410
  Serious: Yes (Other)
  Sender: FDA-Public Use
  Company Number: 2024A067924

PATIENT
  Age: 52 Year
  Sex: Male

DRUGS (8)
  1. BENRALIZUMAB [Suspect]
     Active Substance: BENRALIZUMAB
     Indication: Asthma
     Dates: start: 20240216
  2. MOMETASONE [Concomitant]
     Active Substance: MOMETASONE
     Indication: Asthma
     Dosage: 0 MG DAILY
     Route: 055
     Dates: start: 20230731
  3. ALLOPURINOL [Concomitant]
     Active Substance: ALLOPURINOL
     Indication: Hyperuricaemia
     Route: 048
     Dates: start: 20221007
  4. SPIRIVA [Concomitant]
     Active Substance: TIOTROPIUM BROMIDE MONOHYDRATE
     Indication: Asthma
     Dosage: 2.5UG/INHAL DAILY
     Route: 055
     Dates: start: 20220920
  5. FOSTER [Concomitant]
     Active Substance: BECLOMETHASONE\FORMOTEROL
     Indication: Asthma
     Dosage: 206UG/INHAL DAILY
     Route: 055
     Dates: start: 20230323
  6. VENTOLIN [Concomitant]
     Active Substance: ALBUTEROL SULFATE
     Indication: Asthma
     Dosage: 100UG/INHAL DAILY
     Route: 055
     Dates: start: 20070907
  7. BILASTINE [Concomitant]
     Active Substance: BILASTINE
     Indication: Mechanical urticaria
     Route: 048
     Dates: start: 20190823
  8. MONTELUKAST [Concomitant]
     Active Substance: MONTELUKAST SODIUM
     Indication: Asthma
     Route: 048
     Dates: start: 20230323

REACTIONS (1)
  - Presyncope [Recovered/Resolved]

NARRATIVE: CASE EVENT DATE: 20240216
